FAERS Safety Report 7422265-4 (Version None)
Quarter: 2011Q2

REPORT INFORMATION
  Report Type: 
  Country: None (occurrence: None)
  Receive Date: 20110419
  Receipt Date: 20110412
  Transmission Date: 20111010
  Serious: Yes (Hospitalization)
  Sender: FDA-Public Use
  Company Number: GB-AMGEN-GBRCT2011020079

PATIENT
  Age: 29 Year
  Sex: Male
  Weight: 79.7 kg

DRUGS (1)
  1. ETANERCEPT [Suspect]
     Indication: PSORIASIS
     Dosage: 50 MG, QWK
     Route: 058
     Dates: start: 20100804, end: 20110202

REACTIONS (7)
  - EXCORIATION [None]
  - POSTOPERATIVE WOUND INFECTION [None]
  - INGUINAL MASS [None]
  - LYMPHADENOPATHY [None]
  - STAPHYLOCOCCAL INFECTION [None]
  - RASH PRURITIC [None]
  - CELLULITIS [None]
